FAERS Safety Report 13394382 (Version 1)
Quarter: 2017Q2

REPORT INFORMATION
  Report Type: Spontaneous
  Country: US (occurrence: US)
  Receive Date: 20170402
  Receipt Date: 20170402
  Transmission Date: 20170830
  Serious: Yes (Other)
  Sender: FDA-Public Use
  Company Number: US-BEH-2017079252

PATIENT
  Age: 73 Year
  Sex: Female
  Weight: 78.91 kg

DRUGS (36)
  1. PHILLIPS^ COLON HEALTH PROBIOTIC + FIBER [Concomitant]
  2. VYTORIN [Concomitant]
     Active Substance: EZETIMIBE\SIMVASTATIN
  3. ZITHROMAX [Concomitant]
     Active Substance: AZITHROMYCIN DIHYDRATE
  4. LANTUS [Concomitant]
     Active Substance: INSULIN GLARGINE
  5. ALLOPURINOL. [Concomitant]
     Active Substance: ALLOPURINOL
  6. ALLEGRA [Concomitant]
     Active Substance: FEXOFENADINE HYDROCHLORIDE
  7. MULTIVITAMIN                       /00097801/ [Concomitant]
     Active Substance: VITAMINS
  8. ACETAMINOPHEN. [Concomitant]
     Active Substance: ACETAMINOPHEN
  9. LIDOCAINE/PRILOCAINE [Concomitant]
     Active Substance: LIDOCAINE\PRILOCAINE
  10. PREDNISONE. [Concomitant]
     Active Substance: PREDNISONE
  11. LIDODERM [Concomitant]
     Active Substance: LIDOCAINE
  12. FISH OIL [Concomitant]
     Active Substance: FISH OIL
  13. PROTONIX [Concomitant]
     Active Substance: PANTOPRAZOLE SODIUM
  14. VITAMIN D                          /00107901/ [Concomitant]
     Active Substance: ERGOCALCIFEROL
  15. PLAVIX [Concomitant]
     Active Substance: CLOPIDOGREL BISULFATE
  16. ASPIRIN. [Concomitant]
     Active Substance: ASPIRIN
  17. LASIX [Concomitant]
     Active Substance: FUROSEMIDE
  18. COMBIVENT RESPIMAT [Concomitant]
     Active Substance: ALBUTEROL SULFATE\IPRATROPIUM BROMIDE
  19. AVELOX [Concomitant]
     Active Substance: MOXIFLOXACIN HYDROCHLORIDE
  20. ZYLOPRIM [Concomitant]
     Active Substance: ALLOPURINOL
  21. DIPHENHYDRAMINE. [Concomitant]
     Active Substance: DIPHENHYDRAMINE
  22. POTASSIUM [Concomitant]
     Active Substance: POTASSIUM
  23. HIZENTRA [Suspect]
     Active Substance: HUMAN IMMUNOGLOBULIN G
     Indication: IMMUNODEFICIENCY COMMON VARIABLE
     Dosage: 12 G, UNK
     Route: 058
     Dates: start: 20121226
  24. EPIPEN [Concomitant]
     Active Substance: EPINEPHRINE
  25. DUONEB [Concomitant]
     Active Substance: ALBUTEROL SULFATE\IPRATROPIUM BROMIDE
  26. NOVOLOG [Concomitant]
     Active Substance: INSULIN ASPART
  27. HYDRALAZINE [Concomitant]
     Active Substance: HYDRALAZINE HYDROCHLORIDE
  28. DILTIAZEM. [Concomitant]
     Active Substance: DILTIAZEM
  29. PROBIOTIC                          /06395501/ [Concomitant]
     Active Substance: BIFIDOBACTERIUM ANIMALIS SUBSP. LACTIS
  30. ZYFLO [Concomitant]
     Active Substance: ZILEUTON
  31. PROAIR HFA [Concomitant]
     Active Substance: ALBUTEROL SULFATE
  32. HIZENTRA [Suspect]
     Active Substance: HUMAN IMMUNOGLOBULIN G
     Dosage: UNK
     Route: 058
  33. DENAVIR [Concomitant]
     Active Substance: PENCICLOVIR
  34. DIOVAN [Concomitant]
     Active Substance: VALSARTAN
  35. SYMBICORT [Concomitant]
     Active Substance: BUDESONIDE\FORMOTEROL FUMARATE DIHYDRATE
  36. NITROGLYCERIN. [Concomitant]
     Active Substance: NITROGLYCERIN

REACTIONS (1)
  - Implantable defibrillator insertion [Unknown]

NARRATIVE: CASE EVENT DATE: 20170317
